FAERS Safety Report 8128869-8 (Version None)
Quarter: 2012Q1

REPORT INFORMATION
  Report Type: 
  Country: None (occurrence: None)
  Receive Date: 20120210
  Receipt Date: 20110413
  Transmission Date: 20120608
  Serious: No
  Sender: FDA-Public Use
  Company Number: US-BRISTOL-MYERS SQUIBB COMPANY-15671605

PATIENT
  Sex: Female

DRUGS (3)
  1. CELEBREX [Concomitant]
  2. ORENCIA [Suspect]
     Dosage: ATLEAST A YEAR
  3. PREVACID [Concomitant]
     Dosage: RX PREVACID

REACTIONS (1)
  - BRONCHITIS [None]
